FAERS Safety Report 19670976 (Version 1)
Quarter: 2021Q3

REPORT INFORMATION
  Report Type: Spontaneous
  Country: US (occurrence: US)
  Receive Date: 20210806
  Receipt Date: 20210806
  Transmission Date: 20211014
  Serious: No
  Sender: FDA-Public Use
  Company Number: US-PFIZER INC-2021864884

PATIENT
  Age: 83 Year
  Sex: Female
  Weight: 60.78 kg

DRUGS (15)
  1. VICODIN [Suspect]
     Active Substance: ACETAMINOPHEN\HYDROCODONE BITARTRATE
  2. LIPITOR [Suspect]
     Active Substance: ATORVASTATIN CALCIUM
  3. ERYTHROMYCIN. [Suspect]
     Active Substance: ERYTHROMYCIN
  4. LYRICA [Suspect]
     Active Substance: PREGABALIN
  5. ZOLOFT [Suspect]
     Active Substance: SERTRALINE HYDROCHLORIDE
  6. VIOXX [Suspect]
     Active Substance: ROFECOXIB
  7. ZOCOR [Suspect]
     Active Substance: SIMVASTATIN
  8. LESCOL [Suspect]
     Active Substance: FLUVASTATIN SODIUM
  9. ZYRTEC [Suspect]
     Active Substance: CETIRIZINE HYDROCHLORIDE
  10. DARVOCET [Suspect]
     Active Substance: ACETAMINOPHEN\PROPOXYPHENE HYDROCHLORIDE
  11. CELEBREX [Suspect]
     Active Substance: CELECOXIB
     Indication: ARTHRITIS
  12. SALICYLATE SODIUM [Suspect]
     Active Substance: SODIUM SALICYLATE
  13. LIMBREL [Suspect]
     Active Substance: DIETARY SUPPLEMENT\FLAVOCOXID
  14. CLARITHROMYCIN. [Suspect]
     Active Substance: CLARITHROMYCIN
  15. CRESTOR [Suspect]
     Active Substance: ROSUVASTATIN CALCIUM

REACTIONS (2)
  - Urticaria [Unknown]
  - Hypersensitivity [Unknown]
